FAERS Safety Report 13022415 (Version 1)
Quarter: 2016Q4

REPORT INFORMATION
  Report Type: Report from Study
  Country: US (occurrence: US)
  Receive Date: 20161213
  Receipt Date: 20161213
  Transmission Date: 20170207
  Serious: Yes (Other)
  Sender: FDA-Public Use
  Company Number: US-AMGEN-USASL2016150911

PATIENT
  Age: 60 Year
  Sex: Male
  Weight: 108.84 kg

DRUGS (1)
  1. REPATHA [Suspect]
     Active Substance: EVOLOCUMAB
     Indication: HYPERCHOLESTEROLAEMIA
     Dosage: 140 MG, Q2WK
     Route: 065
     Dates: start: 20160817

REACTIONS (7)
  - Blood glucose decreased [Unknown]
  - Fall [Unknown]
  - Drug dose omission [Unknown]
  - Syncope [Unknown]
  - Eyelid disorder [Unknown]
  - Eye contusion [Unknown]
  - Wrong technique in product usage process [Unknown]

NARRATIVE: CASE EVENT DATE: 20161026
